FAERS Safety Report 8025882-6 (Version None)
Quarter: 2012Q1

REPORT INFORMATION
  Report Type: 
  Country: None (occurrence: None)
  Receive Date: 20120105
  Receipt Date: 20111229
  Transmission Date: 20120608
  Serious: Yes (Hospitalization, Other)
  Sender: FDA-Public Use
  Company Number: US-ASTRAZENECA-2010SE30514

PATIENT
  Age: 67 Year
  Sex: Female

DRUGS (3)
  1. NEXIUM [Suspect]
     Route: 048
  2. PRILOSEC OTC [Suspect]
     Route: 048
  3. ASPIRIN [Concomitant]

REACTIONS (12)
  - PHARYNGEAL POLYP [None]
  - DIABETES MELLITUS [None]
  - GASTRIC DISORDER [None]
  - DRUG DOSE OMISSION [None]
  - PHARYNGEAL MASS [None]
  - FALL [None]
  - ABDOMINAL PAIN UPPER [None]
  - DYSPEPSIA [None]
  - MALAISE [None]
  - DRUG INEFFECTIVE [None]
  - HAEMORRHAGE [None]
  - GASTROOESOPHAGEAL REFLUX DISEASE [None]
